FAERS Safety Report 24816378 (Version 1)
Quarter: 2025Q1

REPORT INFORMATION
  Report Type: Spontaneous
  Country: US (occurrence: US)
  Receive Date: 20250107
  Receipt Date: 20250107
  Transmission Date: 20250408
  Serious: No
  Sender: MERCK
  Company Number: US-009507513-2412USA009910

PATIENT
  Sex: Male

DRUGS (4)
  1. KEYTRUDA [Suspect]
     Active Substance: PEMBROLIZUMAB
     Indication: Bone cancer
  2. KEYTRUDA [Suspect]
     Active Substance: PEMBROLIZUMAB
     Indication: Bone cancer
  3. INLYTA [Suspect]
     Active Substance: AXITINIB
     Indication: Bone cancer
     Dosage: 1 MILLIGRAM, BID
     Route: 048
  4. INLYTA [Suspect]
     Active Substance: AXITINIB
     Indication: Bone cancer

REACTIONS (6)
  - Illness [Unknown]
  - Ill-defined disorder [Unknown]
  - Vomiting [Unknown]
  - Fatigue [Unknown]
  - Back pain [Unknown]
  - Product use in unapproved indication [Unknown]
